FAERS Safety Report 5576203-X (Version None)
Quarter: 2007Q4

REPORT INFORMATION
  Report Type: 
  Country: None (occurrence: None)
  Receive Date: 20071228
  Receipt Date: 20071217
  Transmission Date: 20080405
  Serious: Yes (Other)
  Sender: FDA-Public Use
  Company Number: US-ROCHE-521123

PATIENT
  Age: 56 Year
  Sex: Male
  Weight: 67.1 kg

DRUGS (8)
  1. PEGASYS [Suspect]
     Dosage: DURATION 33-34 WEEKS
     Route: 065
     Dates: end: 20041101
  2. RIBAVIRIN [Suspect]
     Dosage: DURATION 33-34 WEEKS
     Route: 065
     Dates: end: 20041101
  3. ATRIPLA [Concomitant]
  4. TRUVADA [Concomitant]
     Dosage: 200-300 MG EVERY DAY
  5. REYATAZ [Concomitant]
  6. ACYCLOVIR [Concomitant]
  7. MARINOL [Concomitant]
  8. AMBIEN [Concomitant]
     Dosage: 1-2 TABLETS AT BEDTIME AS NEEDED

REACTIONS (8)
  - ASTHENIA [None]
  - DIARRHOEA [None]
  - DRUG INEFFECTIVE [None]
  - HEPATIC FIBROSIS [None]
  - LEUKOPENIA [None]
  - NEUTROPENIA [None]
  - SOMNOLENCE [None]
  - THROMBOCYTOPENIA [None]
